FAERS Safety Report 6729799-6 (Version None)
Quarter: 2010Q2

REPORT INFORMATION
  Report Type: 
  Country: None (occurrence: None)
  Receive Date: 20100518
  Receipt Date: 20100506
  Transmission Date: 20101027
  Serious: Yes (Death, Hospitalization)
  Sender: FDA-Public Use
  Company Number: SE-PFIZER INC-2010057440

PATIENT
  Age: 65 Year
  Sex: Male

DRUGS (9)
  1. SUTENT [Suspect]
     Indication: RENAL CANCER METASTATIC
     Dosage: 50 MG, 1X/DAY
     Route: 048
     Dates: start: 20091007, end: 20100308
  2. LIPITOR [Concomitant]
     Dosage: UNK
  3. OMEPRAZOLE [Concomitant]
     Dosage: UNK
  4. LEVOTHYROXINE SODIUM [Concomitant]
     Dosage: UNK
  5. TENORMIN [Concomitant]
     Dosage: UNK
  6. TROMBYL [Concomitant]
     Dosage: UNK
  7. SYNERPRIL [Concomitant]
     Dosage: UNK
  8. OXYCONTIN [Concomitant]
     Dosage: UNK
  9. MAGNESIUM [Concomitant]
     Dosage: UNK

REACTIONS (1)
  - NEPHROTIC SYNDROME [None]
